FAERS Safety Report 13922417 (Version 1)
Quarter: 2017Q3

REPORT INFORMATION
  Report Type: Spontaneous
  Country: IT (occurrence: IT)
  Receive Date: 20170830
  Receipt Date: 20170830
  Transmission Date: 20171127
  Serious: Yes (Death, Hospitalization, Other)
  Sender: FDA-Public Use
  Company Number: IT-MYLANLABS-2017M1053487

PATIENT
  Age: 3 Year
  Sex: Male

DRUGS (2)
  1. GEMCITABINE [Suspect]
     Active Substance: GEMCITABINE\GEMCITABINE HYDROCHLORIDE
     Indication: MEDULLOBLASTOMA
     Dosage: FOR A TOTAL OF FIVE COURSES, FOR 12 WEEKS
     Route: 065
  2. OXALIPLATIN. [Concomitant]
     Active Substance: OXALIPLATIN
     Indication: MEDULLOBLASTOMA
     Dosage: FOR A TOTAL OF FIVE COURSES, FOR 12 WEEKS
     Route: 065

REACTIONS (5)
  - Cardiovascular disorder [Fatal]
  - Thrombotic microangiopathy [Fatal]
  - Oedema peripheral [Unknown]
  - Respiratory distress [Fatal]
  - Pericardial effusion [Fatal]
